FAERS Safety Report 5841539-1 (Version None)
Quarter: 2008Q3

REPORT INFORMATION
  Report Type: 
  Country: None (occurrence: None)
  Receive Date: 20080812
  Receipt Date: 20080730
  Transmission Date: 20090109
  Serious: Yes (Other)
  Sender: FDA-Public Use
  Company Number: US-ROCHE-576849

PATIENT
  Sex: Female

DRUGS (6)
  1. PEG-INTERFERON A-2A (RO 25-8310) [Suspect]
     Route: 065
     Dates: start: 20070817, end: 20080229
  2. PEG-INTERFERON A-2A (RO 25-8310) [Suspect]
     Route: 065
     Dates: start: 20080701
  3. RIBAVIRIN [Suspect]
     Route: 065
     Dates: start: 20070817, end: 20080229
  4. RIBAVIRIN [Suspect]
     Route: 065
     Dates: start: 20080701
  5. INSULIN [Concomitant]
  6. METFORMIN HCL [Concomitant]

REACTIONS (1)
  - CHOLELITHIASIS [None]
